FAERS Safety Report 8282810-6 (Version None)
Quarter: 2012Q2

REPORT INFORMATION
  Report Type: 
  Country: None (occurrence: None)
  Receive Date: 20120411
  Receipt Date: 20120329
  Transmission Date: 20120825
  Serious: Yes (Other)
  Sender: FDA-Public Use
  Company Number: 2012SA015051

PATIENT
  Age: 54 Year
  Sex: Female

DRUGS (1)
  1. ACT TOTAL CARE DRY MOUTH MINT [Suspect]
     Dates: start: 20110722

REACTIONS (4)
  - GLOSSODYNIA [None]
  - OBSTRUCTIVE AIRWAYS DISORDER [None]
  - SWOLLEN TONGUE [None]
  - DYSPNOEA [None]
